FAERS Safety Report 7469641-1 (Version None)
Quarter: 2011Q2

REPORT INFORMATION
  Report Type: 
  Country: None (occurrence: None)
  Receive Date: 20110510
  Receipt Date: 20110504
  Transmission Date: 20111010
  Serious: No
  Sender: FDA-Public Use
  Company Number: US-TEVA-280197USA

PATIENT
  Age: 54 Year
  Sex: Female
  Weight: 78.088 kg

DRUGS (21)
  1. FENTANYL [Suspect]
     Indication: PAIN IN EXTREMITY
  2. NAPROXEN [Suspect]
     Indication: MUSCULOSKELETAL PAIN
  3. TYLOX                              /00446701/ [Suspect]
     Indication: MUSCULOSKELETAL PAIN
  4. PROAIR HFA [Suspect]
     Indication: ASTHMA
     Dosage: 2 PUFFS
  5. CARISOPRODOL [Suspect]
     Indication: MUSCLE RELAXANT THERAPY
     Dates: start: 20100101
  6. TYLOX                              /00446701/ [Suspect]
     Indication: PAIN IN EXTREMITY
  7. TYLOX                              /00446701/ [Suspect]
     Indication: BACK PAIN
  8. FENTANYL [Suspect]
     Indication: ARTHRALGIA
     Dates: start: 20110401
  9. ESOMEPRAZOLE MAGNESIUM [Suspect]
     Indication: ABDOMINAL DISCOMFORT
     Dates: start: 20100101
  10. DIAZEPAM [Suspect]
     Indication: ANXIETY
     Dates: start: 20100101
  11. FENTANYL [Suspect]
     Indication: MUSCULOSKELETAL PAIN
  12. NAPROXEN [Suspect]
     Indication: ARTHRALGIA
     Dates: start: 20090101
  13. CALCIUM CARBONATE [Suspect]
     Indication: VITAMIN SUPPLEMENTATION
  14. IPRATROPIUM BROMIDE [Suspect]
     Indication: ASTHMA
     Dates: end: 20110416
  15. FENTANYL [Suspect]
     Indication: BACK PAIN
  16. NAPROXEN [Suspect]
     Indication: BACK PAIN
  17. SALBUTAMOL SULFATE [Suspect]
     Indication: ASTHMA
     Dates: end: 20110416
  18. ONE-A-DAY                          /00156401/ [Suspect]
     Indication: VITAMIN SUPPLEMENTATION
  19. SERTRALINE HYDROCHLORIDE [Suspect]
     Indication: DEPRESSION
     Dates: start: 19950101
  20. TYLOX                              /00446701/ [Suspect]
     Indication: ARTHRALGIA
  21. NAPROXEN [Suspect]
     Indication: PAIN IN EXTREMITY

REACTIONS (4)
  - ABDOMINAL DISCOMFORT [None]
  - PHARYNGITIS STREPTOCOCCAL [None]
  - PYREXIA [None]
  - HYPERHIDROSIS [None]
